FAERS Safety Report 24007194 (Version 1)
Quarter: 2024Q2

REPORT INFORMATION
  Report Type: Spontaneous
  Country: CO (occurrence: CO)
  Receive Date: 20240624
  Receipt Date: 20240624
  Transmission Date: 20240716
  Serious: Yes (Death)
  Sender: FDA-Public Use
  Company Number: CO-BoehringerIngelheim-2024-BI-035709

PATIENT
  Sex: Male

DRUGS (1)
  1. NINTEDANIB [Suspect]
     Active Substance: NINTEDANIB
     Indication: Pulmonary fibrosis
     Dosage: 150 MG EVERY 12 HOURS
     Dates: start: 20240126

REACTIONS (1)
  - Death [Fatal]

NARRATIVE: CASE EVENT DATE: 20240216
